FAERS Safety Report 7874985-5 (Version None)
Quarter: 2011Q4

REPORT INFORMATION
  Report Type: 
  Country: None (occurrence: None)
  Receive Date: 20111031
  Receipt Date: 20111021
  Transmission Date: 20120403
  Serious: Yes (Hospitalization)
  Sender: FDA-Public Use
  Company Number: US-US-EMD SERONO, INC.-7091323

PATIENT
  Sex: Female
  Weight: 83 kg

DRUGS (6)
  1. REBIF [Suspect]
     Indication: MULTIPLE SCLEROSIS
     Route: 058
     Dates: start: 20061101, end: 20110101
  2. VERAPAMIL [Concomitant]
     Indication: HYPERTENSION
  3. AMITRIPTYLINE HCL [Concomitant]
     Indication: SLEEP DISORDER
  4. AMANTADINE HCL [Concomitant]
     Indication: FATIGUE
  5. SINGULAIR [Concomitant]
     Indication: ASTHMA
  6. REBIF [Suspect]
     Dates: start: 20111020

REACTIONS (1)
  - DIVERTICULITIS [None]
